FAERS Safety Report 5232177-2 (Version None)
Quarter: 2007Q1

REPORT INFORMATION
  Report Type: 
  Country: None (occurrence: None)
  Receive Date: 20070205
  Receipt Date: 20070123
  Transmission Date: 20070707
  Serious: Yes (Hospitalization, Other)
  Sender: FDA-Public Use
  Company Number: 232172

PATIENT
  Age: 32 Year
  Sex: Male

DRUGS (2)
  1. AVASTIN [Suspect]
     Indication: GLIOMA
     Dosage: 10 MG/KG, DAYS 1 + 15, INTRAVENOUS
     Route: 042
     Dates: start: 20060918
  2. DILANTIN [Concomitant]

REACTIONS (3)
  - ANTICONVULSANT DRUG LEVEL INCREASED [None]
  - CONVULSION [None]
  - DRUG TOXICITY [None]
